FAERS Safety Report 16715935 (Version 4)
Quarter: 2019Q3

REPORT INFORMATION
  Report Type: Spontaneous
  Country: FR (occurrence: FR)
  Receive Date: 20190819
  Receipt Date: 20190930
  Transmission Date: 20191005
  Serious: Yes (Life-Threatening)
  Sender: FDA-Public Use
  Company Number: FR-TEVA-2019-FR-1092800

PATIENT
  Age: 85 Year
  Sex: Male
  Weight: 75 kg

DRUGS (11)
  1. BISOPROLOL (HEMIFUMARATE DE) [Suspect]
     Active Substance: BISOPROLOL FUMARATE
     Indication: POISONING DELIBERATE
     Dosage: 20 MG, ONCE, AMOUNT QUANTITY SUPPOSEDLY INGESTED: 4 TABLETS OF 5 MG
     Route: 048
     Dates: start: 20190701, end: 20190701
  2. INSPRA [Suspect]
     Active Substance: EPLERENONE
     Indication: POISONING DELIBERATE
     Dosage: 100 MG, ONCE, AMOUNT INGESTED SUPPOSED: 4 TABLETS
     Route: 048
     Dates: start: 20190701, end: 20190701
  3. IMOVANE [Suspect]
     Active Substance: ZOPICLONE
     Indication: POISONING DELIBERATE
     Dosage: 30 MILLIGRAM, SUPPOSED AMOUNT INGESTED: 4 TIMES 7.5 MG
     Route: 048
     Dates: start: 20190701, end: 20190701
  4. INEXIUM 20 MG, COMPRIME GASTRO-RESISTANT [Suspect]
     Active Substance: ESOMEPRAZOLE
     Indication: POISONING DELIBERATE
     Dosage: 80 MILLIGRAM, SUPPOSED AMOUNT INGESTED: 4 20 MG TABLETS
     Route: 048
     Dates: start: 20190701, end: 20190701
  5. KARDEGIC [Suspect]
     Active Substance: ASPIRIN DL-LYSINE
     Indication: POISONING DELIBERATE
     Dosage: 300 MG, ONCE, AMOUNT INGESTED SUPPOSED: 4 BAGS OF 75 MG
     Route: 048
     Dates: start: 20190701, end: 20190701
  6. CORDARONE [Suspect]
     Active Substance: AMIODARONE HYDROCHLORIDE
     Indication: POISONING DELIBERATE
     Dosage: 800 MILLIGRAM, SUPPOSED AMOUNT INGESTED 4 CP OF 200 MG
     Route: 048
     Dates: start: 20190701, end: 20190701
  7. RAMIPRIL. [Suspect]
     Active Substance: RAMIPRIL
     Indication: POISONING DELIBERATE
     Dosage: 20 MILLIGRAM
     Route: 048
     Dates: start: 20190701, end: 20190701
  8. CHLORHYDRATE DE MIANSERINE [Suspect]
     Active Substance: MIANSERIN HYDROCHLORIDE
     Indication: POISONING DELIBERATE
     Dosage: 120 MG, ONCE, AMOUNT INGESTED SUPPOSED: 4 TABLETS OF 30 MG
     Route: 048
     Dates: start: 20190701, end: 20190701
  9. LEVOTHYROX 125 MICROGRAMS, COMPRIME [Suspect]
     Active Substance: LEVOTHYROXINE
     Indication: POISONING DELIBERATE
     Dosage: 500 UG/INHALATION, AMOUNT INGESTED SUPPOSED: 125 MICROGRAMS FOUR TIMES A DAY
     Route: 048
  10. MELATONINE [Suspect]
     Active Substance: MELATONIN
     Indication: POISONING DELIBERATE
     Dosage: 48 MG, ONCE, AMOUNT INGESTED SUPPOSED:12 MG FOUR TIMES A DAY
     Route: 048
     Dates: start: 20190701, end: 20190701
  11. TAHOR [Suspect]
     Active Substance: ATORVASTATIN CALCIUM
     Indication: POISONING DELIBERATE
     Dosage: 40 MILLIGRAM
     Route: 048
     Dates: start: 20190701, end: 20190701

REACTIONS (5)
  - Bradycardia [Recovered/Resolved]
  - Cardiogenic shock [Recovered/Resolved]
  - Hypoglycaemia [Recovered/Resolved]
  - Overdose [Unknown]
  - Poisoning deliberate [Recovered/Resolved]

NARRATIVE: CASE EVENT DATE: 20190701
